FAERS Safety Report 8677482 (Version 2)
Quarter: 2012Q4

REPORT INFORMATION
  Report Type: 
  Country: US (occurrence: US)
  Receive Date: 20120723
  Receipt Date: 20120925
  Transmission Date: 20130627
  Serious: Yes (Death, Hospitalization, Other)
  Sender: FDA-Public Use
  Company Number: PHEH2012US014232

PATIENT
  Age: 56 Year
  Sex: Female

DRUGS (1)
  1. AFINITOR [Suspect]
     Indication: PANCREATIC NEUROENDOCRINE TUMOUR METASTATIC
     Dosage: 10 mg, daily
     Route: 048
     Dates: start: 20120413, end: 201206

REACTIONS (4)
  - Renal failure acute [Fatal]
  - Azotaemia [Fatal]
  - Hypovolaemia [Fatal]
  - Gastroenteritis viral [Not Recovered/Not Resolved]
